FAERS Safety Report 7690499-X (Version None)
Quarter: 2011Q3

REPORT INFORMATION
  Report Type: 
  Country: None (occurrence: None)
  Receive Date: 20110818
  Receipt Date: 20110815
  Transmission Date: 20111222
  Serious: Yes (Other)
  Sender: FDA-Public Use
  Company Number: JP-TEVA-296289ISR

PATIENT
  Age: 14 Year
  Sex: Female

DRUGS (6)
  1. CISPLATIN [Suspect]
  2. METHOTREXATE [Suspect]
     Route: 037
  3. CYCLOPHOSPHAMIDE [Suspect]
  4. ETOPOSIDE [Suspect]
  5. DEXAMETHASONE [Suspect]
  6. VINCRISTINE [Suspect]

REACTIONS (4)
  - LYMPHOPENIA [None]
  - ENCEPHALITIS VIRAL [None]
  - EPSTEIN-BARR VIRUS ASSOCIATED LYMPHOPROLIFERATIVE DISORDER [None]
  - CYTOMEGALOVIRUS INFECTION [None]
